FAERS Safety Report 7336172-9 (Version None)
Quarter: 2011Q1

REPORT INFORMATION
  Report Type: 
  Country: None (occurrence: None)
  Receive Date: 20110307
  Receipt Date: 20110301
  Transmission Date: 20110831
  Serious: Yes (Other)
  Sender: FDA-Public Use
  Company Number: US-PFIZER INC-2011044397

PATIENT
  Sex: Female

DRUGS (2)
  1. MOBIC [Suspect]
     Indication: INFLAMMATION
     Dosage: UNK
  2. CELEBREX [Suspect]
     Indication: INFLAMMATION
     Dosage: UNK

REACTIONS (8)
  - OEDEMA PERIPHERAL [None]
  - DRUG INEFFECTIVE [None]
  - HEADACHE [None]
  - ARTHRALGIA [None]
  - PAIN IN EXTREMITY [None]
  - MUSCULOSKELETAL STIFFNESS [None]
  - RHEUMATOID ARTHRITIS [None]
  - MYALGIA [None]
